FAERS Safety Report 4540710-9 (Version None)
Quarter: 2004Q4

REPORT INFORMATION
  Report Type: 
  Country: None (occurrence: None)
  Receive Date: 20041229
  Receipt Date: 20041223
  Transmission Date: 20050328
  Serious: Yes (Death)
  Sender: FDA-Public Use
  Company Number: 200414817FR

PATIENT
  Age: 60 Year
  Sex: Female
  Weight: 58 kg

DRUGS (7)
  1. LASILIX [Suspect]
     Route: 042
     Dates: start: 20041129, end: 20041202
  2. DIFFU K [Concomitant]
     Route: 048
     Dates: start: 20041130, end: 20041202
  3. GELUPRANE [Concomitant]
     Route: 048
     Dates: start: 20040927, end: 20041122
  4. MANTADIX [Concomitant]
     Route: 048
     Dates: start: 20040927, end: 20041126
  5. PEGASYS [Concomitant]
     Route: 058
     Dates: start: 20040927, end: 20041122
  6. COPEGUS                                 /NET/ [Concomitant]
     Route: 048
     Dates: start: 20040927, end: 20041126
  7. ISOPTIN [Concomitant]

REACTIONS (9)
  - BLOOD BILIRUBIN INCREASED [None]
  - BRADYCARDIA [None]
  - CARDIAC ARREST [None]
  - COR PULMONALE ACUTE [None]
  - HEART RATE DECREASED [None]
  - HEART RATE IRREGULAR [None]
  - HYPOKALAEMIA [None]
  - PLATELET COUNT DECREASED [None]
  - WHITE BLOOD CELL COUNT DECREASED [None]
